FAERS Safety Report 17429979 (Version 15)
Quarter: 2022Q1

REPORT INFORMATION
  Report Type: Spontaneous
  Country: US (occurrence: US)
  Receive Date: 20200218
  Receipt Date: 20220224
  Transmission Date: 20220423
  Serious: No
  Sender: FDA-Public Use
  Company Number: US-PFIZER INC-2020069102

PATIENT
  Age: 48 Year
  Sex: Female
  Weight: 124.74 kg

DRUGS (17)
  1. GENOTROPIN [Suspect]
     Active Substance: SOMATROPIN
     Indication: Growth hormone deficiency
     Dosage: 0.1 MG, DAILY
     Dates: start: 20141006
  2. GENOTROPIN [Suspect]
     Active Substance: SOMATROPIN
     Indication: Hormone level abnormal
     Dosage: 0.2 MG, DAILY
     Dates: start: 20141006
  3. GENOTROPIN [Suspect]
     Active Substance: SOMATROPIN
     Dosage: 0.2 MG, 1X/DAY
  4. AZELASTINE [Concomitant]
     Active Substance: AZELASTINE
     Indication: Dyspnoea
     Dosage: 137 UG, ONCE TO TWICE DAILY IN BOTH NOSTRILS
  5. CHOLESTYRAMINE [Concomitant]
     Active Substance: CHOLESTYRAMINE
     Indication: Pancreatitis
     Dosage: 1 DF, 2X/DAY
     Dates: start: 2017
  6. CHOLESTYRAMINE [Concomitant]
     Active Substance: CHOLESTYRAMINE
     Indication: Blood cholesterol abnormal
  7. DICLOFENAC [Concomitant]
     Active Substance: DICLOFENAC
     Indication: Osteoarthritis
     Dosage: 75 MG, 2X/DAY
  8. DRISDOL [Concomitant]
     Active Substance: ERGOCALCIFEROL
     Indication: Vitamin D deficiency
     Dosage: 50000 IU, WEEKLY
  9. GABAPENTIN [Concomitant]
     Active Substance: GABAPENTIN
     Indication: Fibromyalgia
     Dosage: 1200 MG, 3X/DAY
  10. GABAPENTIN [Concomitant]
     Active Substance: GABAPENTIN
     Indication: Neuralgia
  11. GABAPENTIN [Concomitant]
     Active Substance: GABAPENTIN
     Indication: Pain
  12. LIOTHYRONINE [Concomitant]
     Active Substance: LIOTHYRONINE
     Indication: Hypothyroidism
     Dosage: 5 MG, 2X/DAY
  13. SYNTHROID [Concomitant]
     Active Substance: LEVOTHYROXINE SODIUM
     Indication: Hypothyroidism
     Dosage: 162.5 UG, DAILY
  14. PROBIOTICS NOS [Concomitant]
     Active Substance: PROBIOTICS NOS
     Indication: Probiotic therapy
     Dosage: 2 DF, DAILY
  15. MELATONIN [Concomitant]
     Active Substance: MELATONIN
     Dosage: UNK
  16. METAMUCIL [Concomitant]
     Active Substance: PLANTAGO SEED
     Dosage: UNK
  17. VITAMIN C [Concomitant]
     Active Substance: ASCORBIC ACID
     Dosage: UNK

REACTIONS (22)
  - Accidental exposure to product [Unknown]
  - Exposure via skin contact [Unknown]
  - Product physical issue [Unknown]
  - Bronchitis [Unknown]
  - Malaise [Unknown]
  - Somnolence [Unknown]
  - Altered visual depth perception [Unknown]
  - Pain [Not Recovered/Not Resolved]
  - Insomnia [Unknown]
  - Tachyphrenia [Unknown]
  - Product dose omission issue [Unknown]
  - Condition aggravated [Unknown]
  - Memory impairment [Unknown]
  - Asthenia [Unknown]
  - Therapeutic product effect decreased [Unknown]
  - Pain [Unknown]
  - Expired product administered [Unknown]
  - Stress [Unknown]
  - Injury [Unknown]
  - Anxiety [Unknown]
  - Depressed mood [Unknown]
  - Mental disorder [Unknown]

NARRATIVE: CASE EVENT DATE: 20200410
